FAERS Safety Report 7020942-0 (Version None)
Quarter: 2010Q3

REPORT INFORMATION
  Report Type: 
  Country: None (occurrence: None)
  Receive Date: 20100929
  Receipt Date: 20100927
  Transmission Date: 20110219
  Serious: Yes (Hospitalization, Disabling, Other)
  Sender: FDA-Public Use
  Company Number: US-PURDUE-USA-2010-0047583

PATIENT
  Sex: Female

DRUGS (1)
  1. TRAMADOL HCL [Suspect]
     Indication: PRODUCT USED FOR UNKNOWN INDICATION
     Dosage: UNK
     Dates: start: 20100101

REACTIONS (6)
  - CHEST PAIN [None]
  - CONVULSION [None]
  - IMPAIRED WORK ABILITY [None]
  - LIVER DISORDER [None]
  - RENAL DISORDER [None]
  - SHOCK [None]
